FAERS Safety Report 11664259 (Version 1)
Quarter: 2015Q4

REPORT INFORMATION
  Report Type: Spontaneous
  Country: US (occurrence: None)
  Receive Date: 20151026
  Receipt Date: 20151026
  Transmission Date: 20160304
  Serious: Yes (Disabling)
  Sender: FDA-Public Use
  Company Number: None

PATIENT
  Age: 68 Year
  Sex: Female
  Weight: 90.72 kg

DRUGS (12)
  1. SYNTHROID [Concomitant]
     Active Substance: LEVOTHYROXINE SODIUM
  2. PRINIVIL [Concomitant]
     Active Substance: LISINOPRIL
  3. HYDROXYCHLOROQUINE [Concomitant]
     Active Substance: HYDROXYCHLOROQUINE
  4. JANUVIA [Suspect]
     Active Substance: SITAGLIPTIN PHOSPHATE
     Indication: TYPE 2 DIABETES MELLITUS
     Route: 048
     Dates: start: 20141201, end: 20151020
  5. TRAMADOL. [Concomitant]
     Active Substance: TRAMADOL
  6. GLIMEPERIDE [Concomitant]
     Active Substance: GLIMEPIRIDE
  7. ZETIA [Concomitant]
     Active Substance: EZETIMIBE
  8. WARFARIN [Concomitant]
     Active Substance: WARFARIN
  9. ACTOS [Concomitant]
     Active Substance: PIOGLITAZONE HYDROCHLORIDE
  10. MELOXICAM. [Concomitant]
     Active Substance: MELOXICAM
  11. VITAMIN D [Concomitant]
     Active Substance: CHOLECALCIFEROL
  12. LAXITIVE [Concomitant]

REACTIONS (6)
  - Abasia [None]
  - Procedural pain [None]
  - Pain in extremity [None]
  - Arthralgia [None]
  - Impaired healing [None]
  - Knee arthroplasty [None]
